FAERS Safety Report 7361115-1 (Version None)
Quarter: 2011Q1

REPORT INFORMATION
  Report Type: 
  Country: None (occurrence: None)
  Receive Date: 20110318
  Receipt Date: 20110314
  Transmission Date: 20110831
  Serious: Yes (Other)
  Sender: FDA-Public Use
  Company Number: KR-ROCHE-765268

PATIENT

DRUGS (3)
  1. CAPECITABINE [Suspect]
     Dosage: PER DAY FROM DAY 1 TO 14 FOLLOWED BY 7 DAYS REST: POSTOPERATIVE THERAPY
     Route: 065
  2. CAPECITABINE [Suspect]
     Indication: RECTAL CANCER
     Dosage: ON DAY 1-38 (MON TO FRI) PREOPERATIVE
     Route: 065
  3. IRINOTECAN HYDROCHLORIDE [Suspect]
     Indication: RECTAL CANCER
     Dosage: ON DAYS 1, 8, 15, 22 AND 29
     Route: 065

REACTIONS (7)
  - PALMAR-PLANTAR ERYTHRODYSAESTHESIA SYNDROME [None]
  - INFECTION [None]
  - ALANINE AMINOTRANSFERASE INCREASED [None]
  - NEUTROPENIA [None]
  - LEUKOPENIA [None]
  - DIARRHOEA [None]
  - CEREBRAL INFARCTION [None]
